FAERS Safety Report 8406100-3 (Version None)
Quarter: 2012Q2

REPORT INFORMATION
  Report Type: 
  Country: None (occurrence: None)
  Receive Date: 20120604
  Receipt Date: 20120530
  Transmission Date: 20120825
  Serious: Yes (Other)
  Sender: FDA-Public Use
  Company Number: US-TEVA-329924USA

PATIENT
  Sex: Female

DRUGS (1)
  1. CLARAVIS [Suspect]
     Dosage: 40 MG IN AM AND 20 MG IN PM
     Route: 048
     Dates: start: 20110725, end: 20120214

REACTIONS (1)
  - SUICIDE ATTEMPT [None]
